FAERS Safety Report 8486031-3 (Version None)
Quarter: 2012Q3

REPORT INFORMATION
  Report Type: 
  Country: None (occurrence: None)
  Receive Date: 20120703
  Receipt Date: 20120629
  Transmission Date: 20120928
  Serious: Yes (Other)
  Sender: FDA-Public Use
  Company Number: US-PFIZER INC-2012157033

PATIENT
  Sex: Female
  Weight: 88.435 kg

DRUGS (11)
  1. SIMVASTATIN [Concomitant]
     Indication: HYPERTENSION
     Dosage: 20 MG, DAILY
  2. PERCOCET [Concomitant]
     Indication: POST POLIO SYNDROME
  3. IMITREX [Concomitant]
     Indication: MIGRAINE
     Dosage: UNK, AS NEEDED
  4. LYRICA [Suspect]
     Indication: NERVE INJURY
     Dosage: 75 MG, 3X/DAY
     Route: 048
  5. BACTRIM [Suspect]
     Indication: URINARY TRACT INFECTION
     Dosage: 800 MG, 2X/DAY
     Dates: start: 20120101
  6. MECLIZINE [Concomitant]
     Indication: VERTIGO
     Dosage: 25 MG, 3X/DAY
  7. ZANAFLEX [Concomitant]
     Indication: POST POLIO SYNDROME
     Dosage: 4 MG, 2X/DAY
  8. HYDROCHLOROTHIAZIDE [Concomitant]
     Indication: HYPERTENSION
     Dosage: 25 MG, DAILY
  9. ALBUTEROL [Concomitant]
     Indication: ASTHMA
     Dosage: UNK
  10. PERCOCET [Concomitant]
     Indication: BACK PAIN
     Dosage: UNK, 4X/DAY
  11. SINGULAIR [Concomitant]
     Indication: ASTHMA
     Dosage: 10 MG, DAILY

REACTIONS (4)
  - DRUG INEFFECTIVE [None]
  - MALAISE [None]
  - HEPATIC ENZYME INCREASED [None]
  - URINARY TRACT INFECTION [None]
